FAERS Safety Report 7211531-3 (Version None)
Quarter: 2011Q1

REPORT INFORMATION
  Report Type: 
  Country: None (occurrence: None)
  Receive Date: 20110105
  Receipt Date: 20101231
  Transmission Date: 20110831
  Serious: Yes (Death)
  Sender: FDA-Public Use
  Company Number: US-ASTRAZENECA-2011SE00183

PATIENT
  Age: 62 Year
  Sex: Male

DRUGS (10)
  1. FLUOXETINE [Suspect]
     Route: 048
  2. ZOLPIDEM [Suspect]
     Route: 048
  3. ALBUTEROL [Suspect]
     Route: 048
  4. QUETIAPINE [Suspect]
     Route: 048
  5. DIAZEPAM [Suspect]
     Route: 048
  6. BUSPIRONE [Suspect]
     Route: 048
  7. METHADONE [Suspect]
     Route: 048
  8. VENLAFAXINE [Suspect]
     Route: 048
  9. SIMVASTATIN [Suspect]
     Route: 048
  10. TRAMADOL HCL [Suspect]
     Route: 048

REACTIONS (2)
  - CARDIO-RESPIRATORY ARREST [None]
  - TOXICITY TO VARIOUS AGENTS [None]
